FAERS Safety Report 8882082 (Version 2)
Quarter: 2012Q4

REPORT INFORMATION
  Report Type: 
  Country: US (occurrence: US)
  Receive Date: 20121102
  Receipt Date: 20121220
  Transmission Date: 20130627
  Serious: Yes (Hospitalization)
  Sender: FDA-Public Use
  Company Number: US-VERTEX PHARMACEUTICAL INC.-2012-023909

PATIENT
  Age: 64 Year
  Sex: Male

DRUGS (5)
  1. INCIVEK [Suspect]
     Indication: HEPATITIS C
     Dosage: 750 mg, UNK
     Route: 048
     Dates: start: 20120825, end: 20121027
  2. PEGINTERFERON [Suspect]
     Indication: HEPATITIS C
     Dosage: 180 ?g, UNK
     Dates: start: 20120825
  3. PEGINTERFERON [Suspect]
     Dosage: 135 mg, UNK
     Dates: start: 20120915, end: 20121027
  4. RIBAVIRIN [Suspect]
     Indication: HEPATITIS C
     Dosage: 1200 mg, UNK
     Dates: start: 20120825
  5. RIBAVIRIN [Suspect]
     Dosage: 600 mg, UNK
     Dates: start: 20120915, end: 20121027

REACTIONS (10)
  - Rhabdomyolysis [Recovered/Resolved]
  - Leukopenia [Recovered/Resolved]
  - Ascites [Recovered/Resolved]
  - Klebsiella infection [Recovered/Resolved]
  - Blood creatinine increased [Recovered/Resolved]
  - Hyperbilirubinaemia [Recovered/Resolved]
  - Decreased appetite [Unknown]
  - Asthenia [Unknown]
  - Thrombocytopenia [Unknown]
  - Vomiting [Unknown]
